FAERS Safety Report 6634407-9 (Version None)
Quarter: 2010Q1

REPORT INFORMATION
  Report Type: 
  Country: None (occurrence: None)
  Receive Date: 20100311
  Receipt Date: 20100311
  Transmission Date: 20100710
  Serious: No
  Sender: FDA-Public Use
  Company Number: None

PATIENT
  Sex: Female

DRUGS (1)
  1. LOVAZA [Suspect]

REACTIONS (4)
  - FATIGUE [None]
  - LETHARGY [None]
  - NASOPHARYNGITIS [None]
  - SINUSITIS [None]
